FAERS Safety Report 24549974 (Version 1)
Quarter: 2024Q4

REPORT INFORMATION
  Report Type: Spontaneous
  Country: US (occurrence: None)
  Receive Date: 20241024
  Receipt Date: 20241024
  Transmission Date: 20250114
  Serious: Yes (Other)
  Sender: Public
  Company Number: None

PATIENT
  Age: 75 Year
  Sex: Female
  Weight: 56.25 kg

DRUGS (2)
  1. TERBINAFINE HYDROCHLORIDE [Suspect]
     Active Substance: TERBINAFINE HYDROCHLORIDE
     Indication: Fungal skin infection
     Dosage: FREQUENCY : DAILY;?OTHER ROUTE : MOUTH;?
     Route: 048
  2. DOXYCYCLINE HYCLATE [Suspect]
     Active Substance: DOXYCYCLINE HYCLATE
     Indication: Fungal skin infection
     Dosage: FREQUENCY : 3 TIMES A DAY;?OTHER ROUTE : MOUTH;?
     Route: 048

REACTIONS (3)
  - Diarrhoea [None]
  - Gastrointestinal pain [None]
  - Intestinal villi atrophy [None]

NARRATIVE: CASE EVENT DATE: 20241002
